FAERS Safety Report 16308102 (Version 1)
Quarter: 2019Q2

REPORT INFORMATION
  Report Type: Spontaneous
  Country: US (occurrence: US)
  Receive Date: 20190514
  Receipt Date: 20190514
  Transmission Date: 20190711
  Serious: No
  Sender: FDA-Public Use
  Company Number: US-B.I. PHARMACEUTICALS,INC./RIDGEFIELD-2019-BI-020914

PATIENT
  Age: 69 Year
  Sex: Female

DRUGS (1)
  1. TRADJENTA [Suspect]
     Active Substance: LINAGLIPTIN
     Indication: TYPE 2 DIABETES MELLITUS
     Dosage: 1 TABLET TWICE A DAY; STRENGTH: 5 MG; FORMULATION: TABLET? ADMIN? NO ?ACTION: DRUG WITHDRAWN
     Route: 048
     Dates: start: 20190402, end: 20190408

REACTIONS (3)
  - Pain [Not Recovered/Not Resolved]
  - Extra dose administered [Recovered/Resolved]
  - Pancreatic disorder [Not Recovered/Not Resolved]

NARRATIVE: CASE EVENT DATE: 20190402
